FAERS Safety Report 16711135 (Version 1)
Quarter: 2019Q3

REPORT INFORMATION
  Report Type: Report from Study
  Country: US (occurrence: US)
  Receive Date: 20190816
  Receipt Date: 20190816
  Transmission Date: 20191004
  Serious: Yes (Hospitalization)
  Sender: FDA-Public Use
  Company Number: US-BAYER-2019-149321

PATIENT
  Age: 51 Year
  Sex: Female

DRUGS (1)
  1. STIVARGA [Suspect]
     Active Substance: REGORAFENIB
     Indication: COLORECTAL CANCER
     Dosage: 80 MG, QD SWALLOW WHOLE TABLETS WHOLE, WITH WATER, AND LOWFAT MEAL.
     Dates: start: 20190723, end: 20190730

REACTIONS (7)
  - Gait disturbance [Recovering/Resolving]
  - Rash generalised [Recovering/Resolving]
  - Off label use [None]
  - Joint swelling [Recovering/Resolving]
  - Dysphagia [Recovering/Resolving]
  - Pyrexia [Recovering/Resolving]
  - Peripheral swelling [Recovering/Resolving]

NARRATIVE: CASE EVENT DATE: 20190723
